FAERS Safety Report 21775531 (Version 1)
Quarter: 2022Q4

REPORT INFORMATION
  Report Type: Spontaneous
  Country: US (occurrence: US)
  Receive Date: 20221226
  Receipt Date: 20221226
  Transmission Date: 20230112
  Serious: Yes (Congenital Anomaly, Other)
  Sender: FDA-Public Use
  Company Number: US-BAXTER-2022BAX031101

PATIENT
  Age: 32 Year
  Sex: Male

DRUGS (7)
  1. NITROGLYCERIN [Suspect]
     Active Substance: NITROGLYCERIN
     Dosage: UNK
     Route: 065
  2. DOBUTAMINE [Suspect]
     Active Substance: DOBUTAMINE HYDROCHLORIDE
     Route: 065
  3. ISOPROTERENOL [Suspect]
     Active Substance: ISOPROTERENOL
     Dosage: UNK
     Route: 041
  4. DISOPYRAMIDE [Concomitant]
     Active Substance: DISOPYRAMIDE
     Indication: Hypertrophic cardiomyopathy
     Dosage: MAXIMAL DOSES
     Route: 065
  5. DISOPYRAMIDE [Concomitant]
     Active Substance: DISOPYRAMIDE
     Indication: Left ventricle outflow tract obstruction
  6. BISOPROLOL [Concomitant]
     Active Substance: BISOPROLOL
     Indication: Hypertrophic cardiomyopathy
     Dosage: MAXIMAL DOSES
     Route: 065
  7. BISOPROLOL [Concomitant]
     Active Substance: BISOPROLOL
     Indication: Left ventricle outflow tract obstruction

REACTIONS (2)
  - Mitral valve incompetence [Recovered/Resolved]
  - Acquired left ventricle outflow tract obstruction [Recovered/Resolved]
